FAERS Safety Report 5602629-1 (Version None)
Quarter: 2008Q1

REPORT INFORMATION
  Report Type: 
  Country: None (occurrence: None)
  Receive Date: 20080125
  Receipt Date: 20080117
  Transmission Date: 20080703
  Serious: Yes (Hospitalization)
  Sender: FDA-Public Use
  Company Number: GB-ROCHE-542689

PATIENT
  Age: 36 Year
  Sex: Male

DRUGS (10)
  1. KETOROLAC TROMETHAMINE [Suspect]
     Indication: DRUG USE FOR UNKNOWN INDICATION
     Route: 065
  2. ATRACURIUM [Suspect]
     Indication: ENDOTRACHEAL INTUBATION
     Route: 065
  3. CITALOPRAM HYDROBROMIDE [Suspect]
     Indication: DEPRESSION
     Route: 065
  4. FENTANYL CITRATE [Suspect]
     Indication: GENERAL ANAESTHESIA
     Route: 065
  5. FENTANYL CITRATE [Suspect]
     Route: 065
  6. GLYCOPYRRONIUM [Suspect]
     Indication: NEUROMUSCULAR BLOCKADE
     Route: 065
  7. ISOFLURANE [Suspect]
     Indication: ANAESTHESIA
     Route: 065
  8. NEOSTIGMINE [Suspect]
     Indication: NEUROMUSCULAR BLOCKADE
     Route: 065
  9. NITROUS OXIDE [Suspect]
     Indication: ANAESTHESIA
     Route: 065
  10. THIOPENTONE [Suspect]
     Indication: ANAESTHESIA
     Route: 065

REACTIONS (2)
  - COMA [None]
  - CONVERSION DISORDER [None]
